FAERS Safety Report 13704867 (Version 1)
Quarter: 2017Q2

REPORT INFORMATION
  Report Type: Spontaneous
  Country: US (occurrence: US)
  Receive Date: 20170629
  Receipt Date: 20170629
  Transmission Date: 20170830
  Serious: Yes (Hospitalization)
  Sender: FDA-Public Use
  Company Number: None

PATIENT
  Age: 53 Year
  Sex: Male

DRUGS (1)
  1. STIVARGA [Suspect]
     Active Substance: REGORAFENIB
     Indication: COLON CANCER
     Dosage: 160MG DAILY FOR 21 DAYS ON, 7 DAYS OFF PO
     Route: 048
     Dates: start: 20170512, end: 20170624

REACTIONS (1)
  - Disease progression [None]

NARRATIVE: CASE EVENT DATE: 20170624
